FAERS Safety Report 5430342-2 (Version None)
Quarter: 2007Q3

REPORT INFORMATION
  Report Type: 
  Country: None (occurrence: None)
  Receive Date: 20070828
  Receipt Date: 20070813
  Transmission Date: 20080115
  Serious: Yes (Hospitalization, Other)
  Sender: FDA-Public Use
  Company Number: 2007BI017823

PATIENT
  Age: 48 Year
  Sex: Male
  Weight: 64 kg

DRUGS (3)
  1. AVONEX [Suspect]
     Indication: MULTIPLE SCLEROSIS
     Dosage: QW; IM
     Route: 030
     Dates: start: 20030201, end: 20070806
  2. AVONEX [Suspect]
     Indication: MULTIPLE SCLEROSIS
     Dosage: QW; IM
     Route: 030
     Dates: start: 20070801
  3. CARBAMAZEPINE [Concomitant]

REACTIONS (4)
  - BLOOD URINE PRESENT [None]
  - INFLUENZA [None]
  - MULTIPLE SCLEROSIS RELAPSE [None]
  - NEPHROLITHIASIS [None]
